FAERS Safety Report 5886976-4 (Version None)
Quarter: 2008Q3

REPORT INFORMATION
  Report Type: 
  Country: None (occurrence: None)
  Receive Date: 20080917
  Receipt Date: 20080904
  Transmission Date: 20090109
  Serious: No
  Sender: FDA-Public Use
  Company Number: US-B.I. PHARMACEUTICALS,INC./RIDGEFIELD-2008-BP-10967BP

PATIENT
  Sex: Female

DRUGS (16)
  1. SPIRIVA [Suspect]
     Indication: LUNG DISORDER
     Dosage: 18MCG
     Route: 055
     Dates: start: 20030101
  2. SPIRIVA [Suspect]
     Indication: ASTHMA
  3. ADVAIR DISKUS 100/50 [Concomitant]
     Indication: ASTHMA
  4. VENTOLIN [Concomitant]
     Indication: ASTHMA
  5. CARTIA XT [Concomitant]
     Indication: CORONARY ARTERY DISEASE
  6. TOPROL-XL [Concomitant]
     Indication: BLOOD PRESSURE
  7. RANEXA [Concomitant]
     Indication: ANGINA PECTORIS
  8. PLAVIX [Concomitant]
     Indication: CORONARY ARTERY DISEASE
  9. ASPIRIN [Concomitant]
     Indication: CORONARY ARTERY DISEASE
  10. VYTORIN [Concomitant]
     Indication: BLOOD CHOLESTEROL
  11. COUMADIN [Concomitant]
  12. GABAPENTIN [Concomitant]
     Indication: ARTHRITIS
  13. CELEBREX [Concomitant]
     Indication: ARTHRITIS
  14. ULTRAM [Concomitant]
     Indication: ARTHRITIS
  15. CYTOXAN CHEMO [Concomitant]
     Indication: LUNG DISORDER
  16. GLUCOTROL [Concomitant]
     Indication: BLOOD GLUCOSE

REACTIONS (2)
  - DRUG INEFFECTIVE [None]
  - DYSPNOEA [None]
